FAERS Safety Report 14216156 (Version 2)
Quarter: 2017Q4

REPORT INFORMATION
  Report Type: Spontaneous
  Country: US (occurrence: US)
  Receive Date: 20171122
  Receipt Date: 20171221
  Transmission Date: 20180321
  Serious: Yes (Other)
  Sender: FDA-Public Use
  Company Number: US-NAPPMUNDI-USA-2017-0141680

PATIENT
  Age: 66 Year
  Sex: Male
  Weight: 112.93 kg

DRUGS (21)
  1. BUTRANS [Suspect]
     Active Substance: BUPRENORPHINE
     Indication: NEUROPATHY PERIPHERAL
     Dosage: 20 MCG/HR, WEEKLY
     Route: 062
  2. BUPRENORPHINE AND NALOXONE [Concomitant]
     Active Substance: BUPRENORPHINE\NALOXONE
     Indication: RADICULOPATHY
  3. LYRICA [Concomitant]
     Active Substance: PREGABALIN
     Indication: NEURALGIA
     Dosage: 2 X 75 MG, BID
     Route: 048
     Dates: start: 2017
  4. VITAMIN D                          /00107901/ [Concomitant]
     Active Substance: ERGOCALCIFEROL
     Indication: SUPPLEMENTATION THERAPY
     Dosage: 3000 IU, AM
     Route: 048
     Dates: start: 2015
  5. IRON [Concomitant]
     Active Substance: IRON
     Indication: ANAEMIA MACROCYTIC
     Dosage: 3 X 65 MG, HS
     Route: 048
     Dates: start: 2012
  6. ASPIRIN. [Concomitant]
     Active Substance: ASPIRIN
     Indication: PROPHYLAXIS
     Dosage: 81 MG, PM
     Route: 048
     Dates: start: 2012
  7. BUTRANS [Suspect]
     Active Substance: BUPRENORPHINE
     Indication: RADICULOPATHY
  8. VITAMIN B12 [Concomitant]
     Active Substance: CYANOCOBALAMIN
     Indication: ANAEMIA MACROCYTIC
     Dosage: UNK
     Route: 065
     Dates: start: 2012
  9. MULTIVITAMIN                       /00097801/ [Concomitant]
     Active Substance: VITAMINS
     Indication: ANAEMIA MACROCYTIC
     Dosage: UNK, AM
     Route: 048
     Dates: start: 2013
  10. TIZADINE [Concomitant]
     Active Substance: TIZANIDINE HYDROCHLORIDE
     Indication: MUSCLE SPASMS
     Dosage: 4 MG, BID QOD
     Route: 048
     Dates: start: 2017
  11. ESCITALOPRAM [Concomitant]
     Active Substance: ESCITALOPRAM OXALATE
     Indication: DEPRESSION
     Dosage: 20 MG, HS
     Route: 048
     Dates: start: 2011
  12. POTASSIUM                          /00031402/ [Concomitant]
     Active Substance: POTASSIUM
     Indication: HYPOKALAEMIA
     Dosage: 10 MEQ, X 10
     Route: 048
     Dates: start: 2013
  13. VITAMIN B12 [Concomitant]
     Active Substance: CYANOCOBALAMIN
     Indication: ANAEMIA MACROCYTIC
     Dosage: 1000 MCG, DAILY
     Route: 048
     Dates: start: 2012
  14. FOLIC ACID. [Concomitant]
     Active Substance: FOLIC ACID
     Indication: ANAEMIA MACROCYTIC
     Dosage: 3 X 400 MCG, DAILY
     Route: 048
     Dates: start: 2012
  15. ANDROGEL [Concomitant]
     Active Substance: TESTOSTERONE
     Indication: SUPPLEMENTATION THERAPY
     Dosage: 20.25 MG, 2 PUMPS
     Route: 061
     Dates: start: 2002
  16. BUTRANS [Suspect]
     Active Substance: BUPRENORPHINE
     Indication: BACK PAIN
     Dosage: 15 MCG/HR, WEEKLY
     Route: 062
     Dates: start: 201603
  17. BUPRENORPHINE AND NALOXONE [Concomitant]
     Active Substance: BUPRENORPHINE\NALOXONE
     Indication: NEURALGIA
     Dosage: 2 /0.5 MG, 1-4 DAILY PRN
     Route: 060
     Dates: start: 2017
  18. TORSEMIDE. [Concomitant]
     Active Substance: TORSEMIDE
     Indication: CHRONIC KIDNEY DISEASE
     Dosage: 4 X 20 MG, BID
     Route: 048
     Dates: start: 2016
  19. TOPIRAMATE. [Concomitant]
     Active Substance: TOPIRAMATE
     Indication: NEURALGIA
     Dosage: 100 MG, BID
     Route: 048
     Dates: start: 2013
  20. TOPIRAMATE. [Concomitant]
     Active Substance: TOPIRAMATE
     Indication: RADICULOPATHY
  21. TAMSULOSIN [Concomitant]
     Active Substance: TAMSULOSIN
     Indication: PROSTATOMEGALY
     Dosage: 2 X 0.4 MG, BID
     Route: 048
     Dates: start: 2013

REACTIONS (3)
  - Drug effect decreased [Not Recovered/Not Resolved]
  - Neurostimulator removal [Unknown]
  - Spinal decompression [Unknown]

NARRATIVE: CASE EVENT DATE: 201610
